FAERS Safety Report 10168790 (Version 1)
Quarter: 2014Q2

REPORT INFORMATION
  Report Type: Spontaneous
  Country: US (occurrence: None)
  Receive Date: 20140512
  Receipt Date: 20140512
  Transmission Date: 20141212
  Serious: Yes (Other)
  Sender: FDA-Public Use
  Company Number: None

PATIENT
  Age: 77 Year
  Sex: Male

DRUGS (1)
  1. SEROSTIM [Suspect]
     Indication: HIV INFECTION
     Route: 058
     Dates: start: 20131213, end: 20140509

REACTIONS (1)
  - Drug ineffective [None]
